FAERS Safety Report 6155272-2 (Version None)
Quarter: 2009Q2

REPORT INFORMATION
  Report Type: 
  Country: None (occurrence: None)
  Receive Date: 20090410
  Receipt Date: 20090410
  Transmission Date: 20091009
  Serious: Yes (Hospitalization)
  Sender: FDA-Public Use
  Company Number: None

PATIENT
  Sex: Female
  Weight: 66.6788 kg

DRUGS (2)
  1. OMNIPAQUE 240 [Suspect]
     Indication: SPINAL MYELOGRAM
     Dosage: 15-20 ML ONE TIME IT   (DURATION: MINUTES)
  2. SODIUM CHLORIDE [Concomitant]

REACTIONS (7)
  - CONTRAST MEDIA REACTION [None]
  - DYSPNOEA [None]
  - FEELING HOT [None]
  - HEADACHE [None]
  - MUSCLE SPASMS [None]
  - PRURITUS [None]
  - THROAT IRRITATION [None]
